FAERS Safety Report 8625471-6 (Version None)
Quarter: 2012Q3

REPORT INFORMATION
  Report Type: 
  Country: None (occurrence: None)
  Receive Date: 20120827
  Receipt Date: 20120813
  Transmission Date: 20120928
  Serious: Yes (Other)
  Sender: FDA-Public Use
  Company Number: GB-MYLANLABS-2012S1016589

PATIENT
  Sex: Male

DRUGS (10)
  1. FLUCLOXACILLIN [Suspect]
     Indication: FUNGAL INFECTION
     Dosage: 28 CAPSULES, ONCE CAPSULE 4 TIMES A DAY FOR 7 DAYS
     Dates: start: 20120704
  2. FLUCLOXACILLIN [Suspect]
     Indication: CELLULITIS
     Dosage: 28 CAPSULES, ONCE CAPSULE 4 TIMES A DAY FOR 7 DAYS
     Dates: start: 20120704
  3. FLUCLOXACILLIN [Suspect]
  4. ITRACONAZOLE [Suspect]
     Indication: FUNGAL INFECTION
  5. CORTISONE ACETATE [Concomitant]
     Indication: BLISTER
  6. FLUCLOXACILLIN [Suspect]
  7. MICONAZOLE [Suspect]
     Indication: CELLULITIS
     Dosage: DOSE UNIT:
     Route: 061
  8. MICONAZOLE NITRATE [Suspect]
     Indication: FUNGAL INFECTION
     Route: 065
  9. MICONAZOLE [Suspect]
     Indication: FUNGAL INFECTION
     Dosage: DOSE UNIT:
     Route: 061
  10. MICONAZOLE NITRATE [Suspect]
     Indication: CELLULITIS
     Route: 065

REACTIONS (3)
  - CELLULITIS [None]
  - FUNGAL INFECTION [None]
  - BLISTER [None]
